FAERS Safety Report 18932119 (Version 1)
Quarter: 2021Q1

REPORT INFORMATION
  Report Type: Spontaneous
  Country: NL (occurrence: NL)
  Receive Date: 20210224
  Receipt Date: 20210224
  Transmission Date: 20210420
  Serious: No
  Sender: FDA-Public Use
  Company Number: NL-FRESENIUS KABI-FK202101708

PATIENT
  Sex: Female
  Weight: 55 kg

DRUGS (2)
  1. LIDOCAINE (MANUFACTURER UNKNOWN) [Suspect]
     Active Substance: LIDOCAINE
     Indication: ANAESTHESIA
     Dosage: ONE?OFF ADMINISTRATION
     Dates: start: 1996
  2. LIDOCAINE (MANUFACTURER UNKNOWN) [Suspect]
     Active Substance: LIDOCAINE
     Indication: ANAESTHESIA

REACTIONS (1)
  - Anaphylactic reaction [Unknown]
